FAERS Safety Report 6663403-0 (Version None)
Quarter: 2010Q2

REPORT INFORMATION
  Report Type: 
  Country: None (occurrence: None)
  Receive Date: 20100401
  Receipt Date: 20100323
  Transmission Date: 20101027
  Serious: Yes (Other)
  Sender: FDA-Public Use
  Company Number: US-PFIZER INC-2010039034

PATIENT
  Sex: Female
  Weight: 72.109 kg

DRUGS (4)
  1. ZOLOFT [Suspect]
     Dosage: 50 MG, DAILY
  2. PRISTIQ [Suspect]
     Indication: DEPRESSION
     Dosage: 50 MG, DAILY
     Dates: start: 20091101, end: 20100321
  3. SERTRALINE HYDROCHLORIDE [Suspect]
     Dosage: 50 MG, DAILY
  4. OXYBUTYN [Concomitant]
     Dosage: 5 MG, DAILY

REACTIONS (11)
  - DEPRESSION [None]
  - DRUG INEFFECTIVE [None]
  - HYPERSENSITIVITY [None]
  - HYPOTHYROIDISM [None]
  - OROPHARYNGEAL PAIN [None]
  - PARAESTHESIA [None]
  - PNEUMONIA [None]
  - RASH [None]
  - STRESS [None]
  - THROAT IRRITATION [None]
  - WITHDRAWAL SYNDROME [None]
